FAERS Safety Report 8926375 (Version 2)
Quarter: 2012Q4

REPORT INFORMATION
  Report Type: 
  Country: JP (occurrence: JP)
  Receive Date: 20121127
  Receipt Date: 20121203
  Transmission Date: 20130627
  Serious: Yes (Hospitalization)
  Sender: FDA-Public Use
  Company Number: JP-GLAXOSMITHKLINE-B0841857A

PATIENT
  Age: 86 Year
  Sex: Female
  Weight: 55 kg

DRUGS (8)
  1. VALTREX [Suspect]
     Indication: HERPES ZOSTER
     Dosage: 1000MG Three times per day
     Route: 048
     Dates: start: 20121027, end: 20121030
  2. FUROSEMIDE [Suspect]
     Indication: HYPERTENSION
     Dosage: 10MG Per day
     Route: 048
     Dates: end: 20121029
  3. ATORVASTATIN [Concomitant]
     Indication: HYPERLIPIDAEMIA
     Dosage: 10MG Per day
     Route: 048
     Dates: end: 20121029
  4. ATORVASTATIN [Concomitant]
     Indication: HYPERLIPIDAEMIA
     Dosage: 10MG Per day
     Route: 048
     Dates: start: 20121106
  5. MERISLON [Concomitant]
     Indication: DIZZINESS
     Dosage: 12MG Twice per day
     Route: 048
     Dates: end: 20121030
  6. METHYCOBAL [Concomitant]
     Indication: NEURALGIA
     Dosage: .5MG Twice per day
     Route: 048
     Dates: end: 20121030
  7. AMLODIPINE [Concomitant]
     Indication: HYPERTENSION
     Dosage: 2.5MG Per day
     Route: 048
     Dates: end: 20121030
  8. LOXONIN [Concomitant]
     Route: 065

REACTIONS (11)
  - Renal failure acute [Recovered/Resolved]
  - Mental disorder [Recovered/Resolved]
  - Vomiting [Unknown]
  - Urine output decreased [Unknown]
  - Gait disturbance [Unknown]
  - Dysarthria [Unknown]
  - Blood creatinine increased [Unknown]
  - Overdose [Unknown]
  - ECG signs of myocardial ischaemia [Unknown]
  - Protein urine present [Unknown]
  - Dehydration [Unknown]
